FAERS Safety Report 9889383 (Version 2)
Quarter: 2014Q1

REPORT INFORMATION
  Report Type: Spontaneous
  Country: US (occurrence: US)
  Receive Date: 20140211
  Receipt Date: 20140304
  Transmission Date: 20141002
  Serious: No
  Sender: FDA-Public Use
  Company Number: US-B.I. PHARMACEUTICALS,INC./RIDGEFIELD-2014-BI-05656BP

PATIENT
  Age: 59 Year
  Sex: Female
  Weight: 45 kg

DRUGS (10)
  1. SPIRIVA [Suspect]
     Indication: BRONCHITIS CHRONIC
     Dosage: 18 MCG
     Route: 055
     Dates: start: 2013
  2. CALCIUM [Concomitant]
     Indication: OSTEOPOROSIS
     Dosage: 1500 MG
     Route: 048
     Dates: start: 2013
  3. ZOLPIDEM [Concomitant]
     Indication: INSOMNIA
     Dosage: 10 MG
     Route: 048
     Dates: start: 1996
  4. VITAMIN D [Concomitant]
     Indication: OSTEOPOROSIS
     Dosage: 800 RT
     Route: 048
     Dates: start: 2013
  5. COLESTIPOL [Concomitant]
     Indication: DIARRHOEA
     Dosage: 1 MG
     Route: 048
     Dates: start: 2013
  6. LORATADINE [Concomitant]
     Indication: BLOOD CHOLESTEROL INCREASED
     Dosage: 1 MG
     Route: 048
     Dates: start: 2005
  7. RANITIDINE [Concomitant]
     Indication: GASTROOESOPHAGEAL REFLUX DISEASE
     Dosage: 300 MG
     Route: 048
     Dates: start: 2008
  8. OMEPRAZOLE [Concomitant]
     Indication: GASTROOESOPHAGEAL REFLUX DISEASE
     Dosage: 40 MG
     Route: 048
     Dates: start: 2008
  9. LEVEMIR [Concomitant]
     Indication: DIABETES MELLITUS
     Dosage: 60 RT
     Route: 058
     Dates: start: 2012
  10. NOVOLIN [Concomitant]
     Indication: DIABETES MELLITUS
     Dosage: FORMULATION: SUBCUTANEOUS
     Route: 058
     Dates: start: 2012

REACTIONS (3)
  - Dyspnoea [Not Recovered/Not Resolved]
  - Product quality issue [Unknown]
  - Product quality issue [Unknown]
